FAERS Safety Report 21541052 (Version 2)
Quarter: 2022Q4

REPORT INFORMATION
  Report Type: Spontaneous
  Country: JP (occurrence: JP)
  Receive Date: 20221102
  Receipt Date: 20221104
  Transmission Date: 20230113
  Serious: Yes (Death, Life-Threatening, Hospitalization, Other)
  Sender: FDA-Public Use
  Company Number: JP-PFIZER INC-PV202200089264

PATIENT
  Age: 75 Year
  Sex: Female

DRUGS (1)
  1. METHOTREXATE SODIUM [Suspect]
     Active Substance: METHOTREXATE SODIUM
     Dosage: UNK
     Route: 048

REACTIONS (14)
  - Lymphoproliferative disorder [Fatal]
  - Disseminated intravascular coagulation [Fatal]
  - Lactic acidosis [Fatal]
  - Multiple organ dysfunction syndrome [Fatal]
  - Diffuse large B-cell lymphoma [Fatal]
  - Epstein-Barr virus test positive [Fatal]
  - Sepsis [Unknown]
  - Haematemesis [Unknown]
  - Melaena [Unknown]
  - Blood lactate dehydrogenase increased [Unknown]
  - Hyperlactacidaemia [Unknown]
  - Hypoglycaemia [Unknown]
  - Pyrexia [Unknown]
  - Dyspnoea [Unknown]
